FAERS Safety Report 8173097-3 (Version None)
Quarter: 2012Q1

REPORT INFORMATION
  Report Type: 
  Country: None (occurrence: None)
  Receive Date: 20120229
  Receipt Date: 20120217
  Transmission Date: 20120608
  Serious: Yes (Hospitalization)
  Sender: FDA-Public Use
  Company Number: CA-JNJFOC-20120210239

PATIENT
  Sex: Male
  Weight: 91.17 kg

DRUGS (9)
  1. IMURAN [Concomitant]
     Indication: CROHN'S DISEASE
     Route: 048
     Dates: start: 20090101
  2. FERROUS GLUCONATE [Concomitant]
     Indication: COLITIS
     Route: 048
     Dates: start: 20090101
  3. ASACOL [Concomitant]
     Indication: COLITIS
     Route: 048
     Dates: start: 20090101
  4. REMICADE [Suspect]
     Indication: COLITIS
     Route: 042
     Dates: start: 20100427, end: 20111116
  5. CALCIUM CARBONATE [Concomitant]
     Indication: COLITIS
     Route: 048
     Dates: start: 20090101
  6. FERROUS GLUCONATE [Concomitant]
     Indication: CROHN'S DISEASE
     Route: 048
     Dates: start: 20090101
  7. CALCIUM CARBONATE [Concomitant]
     Indication: CROHN'S DISEASE
     Route: 048
     Dates: start: 20090101
  8. ASACOL [Concomitant]
     Indication: CROHN'S DISEASE
     Route: 048
     Dates: start: 20090101
  9. IMURAN [Concomitant]
     Indication: COLITIS
     Route: 048
     Dates: start: 20090101

REACTIONS (5)
  - PLEURAL EFFUSION [None]
  - PERICARDITIS [None]
  - PERICARDIAL EFFUSION [None]
  - ELECTROCARDIOGRAM ST SEGMENT ELEVATION [None]
  - ARTHRALGIA [None]
